FAERS Safety Report 12729077 (Version 1)
Quarter: 2016Q3

REPORT INFORMATION
  Report Type: Spontaneous
  Country: US (occurrence: US)
  Receive Date: 20160908
  Receipt Date: 20160908
  Transmission Date: 20161109
  Serious: Yes (Other)
  Sender: FDA-Public Use
  Company Number: None

PATIENT
  Age: 57 Year
  Sex: Female
  Weight: 108 kg

DRUGS (6)
  1. VERAPAMIL [Concomitant]
     Active Substance: VERAPAMIL HYDROCHLORIDE
  2. SYNTHROID [Concomitant]
     Active Substance: LEVOTHYROXINE SODIUM
  3. LISINOPRIL. [Suspect]
     Active Substance: LISINOPRIL
     Indication: BLOOD PRESSURE MEASUREMENT
     Dosage: 90 DF TABLET DAILY ORAL
     Route: 048
     Dates: start: 20160418, end: 20160527
  4. VITAMIN D [Concomitant]
     Active Substance: CHOLECALCIFEROL
  5. LIOTHYRONINE [Concomitant]
     Active Substance: LIOTHYRONINE
  6. FISH OIL [Concomitant]
     Active Substance: FISH OIL

REACTIONS (6)
  - Pruritus [None]
  - Palpitations [None]
  - Rash [None]
  - Product substitution issue [None]
  - Dizziness [None]
  - Hypoaesthesia [None]

NARRATIVE: CASE EVENT DATE: 20160527
